FAERS Safety Report 7288908-3 (Version None)
Quarter: 2011Q1

REPORT INFORMATION
  Report Type: 
  Country: None (occurrence: None)
  Receive Date: 20110201
  Receipt Date: 20110125
  Transmission Date: 20110831
  Serious: Yes (Death)
  Sender: FDA-Public Use
  Company Number: 2010US005014

PATIENT
  Age: 69 Year
  Sex: Male

DRUGS (3)
  1. DAPTOMYCIN [Concomitant]
  2. VIBATIV [Suspect]
     Indication: ENDOCARDITIS STAPHYLOCOCCAL
     Dosage: IV NOS;
     Dates: start: 20100101, end: 20100101
  3. VANCOMYCIN [Concomitant]

REACTIONS (4)
  - OFF LABEL USE [None]
  - ENDOCARDITIS STAPHYLOCOCCAL [None]
  - DISEASE PROGRESSION [None]
  - GENERAL PHYSICAL HEALTH DETERIORATION [None]
